FAERS Safety Report 18300718 (Version 1)
Quarter: 2020Q3

REPORT INFORMATION
  Report Type: Spontaneous
  Country: US (occurrence: US)
  Receive Date: 20200923
  Receipt Date: 20200923
  Transmission Date: 20201103
  Serious: No
  Sender: FDA-Public Use
  Company Number: None

PATIENT
  Age: 86 Year
  Sex: Male

DRUGS (1)
  1. NAPROXEN (NAPROXEN 250MG TAB) [Suspect]
     Active Substance: NAPROXEN
     Indication: PAIN
     Dates: start: 20200720

REACTIONS (2)
  - Thrombocytopenia [None]
  - Mouth haemorrhage [None]

NARRATIVE: CASE EVENT DATE: 20200726
